FAERS Safety Report 5787325-2 (Version None)
Quarter: 2008Q2

REPORT INFORMATION
  Report Type: 
  Country: None (occurrence: None)
  Receive Date: 20080623
  Receipt Date: 20080623
  Transmission Date: 20081010
  Serious: Yes (Hospitalization, Disabling)
  Sender: FDA-Public Use
  Company Number: None

PATIENT
  Age: 61 Year
  Sex: Female
  Weight: 62 kg

DRUGS (4)
  1. BEVACIZUMAB 10MG/KG GENENTECH [Suspect]
     Indication: PANCREATIC CARCINOMA METASTATIC
     Dosage: 630 MG Q2WKS IV
     Route: 042
     Dates: start: 20070815, end: 20080522
  2. GEMCITABINE [Concomitant]
  3. DOCETAXEL [Concomitant]
  4. LOVAQUIN [Concomitant]

REACTIONS (4)
  - ATELECTASIS [None]
  - INFLAMMATION [None]
  - PLEURAL EFFUSION [None]
  - PNEUMONIA [None]
